FAERS Safety Report 7994160-3 (Version None)
Quarter: 2011Q4

REPORT INFORMATION
  Report Type: 
  Country: None (occurrence: None)
  Receive Date: 20111220
  Receipt Date: 20111208
  Transmission Date: 20120403
  Serious: Yes (Other)
  Sender: FDA-Public Use
  Company Number: CA-JNJFOC-20111205302

PATIENT
  Sex: Male
  Weight: 65 kg

DRUGS (4)
  1. AZATHIOPRINE [Concomitant]
     Dosage: 2 TABLETS AND ALTERNATING DAYS 3 TABLETS
     Route: 048
  2. FERROUS SULFATE TAB [Concomitant]
     Route: 048
  3. REMICADE [Suspect]
     Indication: CROHN'S DISEASE
     Route: 042
     Dates: start: 20111027, end: 20111027
  4. CALCIUM [Concomitant]
     Route: 048

REACTIONS (2)
  - DIARRHOEA HAEMORRHAGIC [None]
  - PYREXIA [None]
